FAERS Safety Report 7332636-2 (Version None)
Quarter: 2011Q1

REPORT INFORMATION
  Report Type: 
  Country: None (occurrence: None)
  Receive Date: 20110304
  Receipt Date: 20110223
  Transmission Date: 20110831
  Serious: Yes (Other)
  Sender: FDA-Public Use
  Company Number: US-PERRIGO-11US001583

PATIENT
  Sex: Female
  Weight: 52.154 kg

DRUGS (1)
  1. APAP COUGH SRTHR CHILD CHRY SUSP 196 [Suspect]
     Indication: COUGH
     Dosage: 10 ML, PRN
     Route: 048
     Dates: start: 20110222, end: 20110223

REACTIONS (4)
  - URTICARIA [None]
  - HYPERSENSITIVITY [None]
  - PRURITUS [None]
  - REACTION TO COLOURING [None]
